FAERS Safety Report 4616286-4 (Version None)
Quarter: 2005Q1

REPORT INFORMATION
  Report Type: 
  Country: None (occurrence: None)
  Receive Date: 20050321
  Receipt Date: 20050308
  Transmission Date: 20050727
  Serious: Yes (Other)
  Sender: FDA-Public Use
  Company Number: 2004097186

PATIENT
  Age: 72 Year
  Sex: Male

DRUGS (6)
  1. LIPITOR [Suspect]
     Indication: ILL-DEFINED DISORDER
     Dosage: 20 MG, ORAL
     Route: 048
     Dates: start: 20031101, end: 20041119
  2. LISINOPRIL [Suspect]
     Indication: ILL-DEFINED DISORDER
     Dates: start: 20041122
  3. CIMETIDINE [Concomitant]
  4. TAMSULOSIN HYDROCHLORIDE (TAMSULOSIN HYDROCHLORIDE) [Concomitant]
  5. ALBUTEROL SULFATE HFA [Concomitant]
  6. CELECOXIB (CELECOXIB) [Concomitant]

REACTIONS (1)
  - SWOLLEN TONGUE [None]
